FAERS Safety Report 17031543 (Version 1)
Quarter: 2019Q4

REPORT INFORMATION
  Report Type: Spontaneous
  Country: US (occurrence: US)
  Receive Date: 20191113
  Receipt Date: 20191113
  Transmission Date: 20200122
  Serious: No
  Sender: FDA-Public Use
  Company Number: None

PATIENT
  Age: 39 Year
  Sex: Male

DRUGS (10)
  1. VITAMIN C [Concomitant]
     Active Substance: ASCORBIC ACID
     Dates: start: 20190222
  2. VITAMIN D3 [Concomitant]
     Active Substance: CHOLECALCIFEROL
     Dates: start: 20190801
  3. FISH OIL [Concomitant]
     Active Substance: FISH OIL
     Dates: start: 20190222
  4. NORCO [Concomitant]
     Active Substance: ACETAMINOPHEN\HYDROCODONE BITARTRATE
     Dates: start: 20190222
  5. COENZYME Q10 [Concomitant]
     Active Substance: UBIDECARENONE
     Dates: start: 20190801
  6. ENBREL [Concomitant]
     Active Substance: ETANERCEPT
     Dates: start: 20190815
  7. PROPECIA [Concomitant]
     Active Substance: FINASTERIDE
     Dates: start: 20190226
  8. XELJANZ XR [Suspect]
     Active Substance: TOFACITINIB CITRATE
     Indication: RHEUMATOID ARTHRITIS
     Route: 048
     Dates: start: 20191029, end: 20191113
  9. GLUCOSAMINE [Concomitant]
     Active Substance: GLUCOSAMINE
     Dates: start: 20190222
  10. FOLIC ACID. [Concomitant]
     Active Substance: FOLIC ACID
     Dates: start: 20190801

REACTIONS (1)
  - Hypersensitivity [None]

NARRATIVE: CASE EVENT DATE: 20191113
